FAERS Safety Report 22620881 (Version 1)
Quarter: 2023Q2

REPORT INFORMATION
  Report Type: Spontaneous
  Country: US (occurrence: None)
  Receive Date: 20230617
  Receipt Date: 20230617
  Transmission Date: 20230722
  Serious: Yes (Other)
  Sender: FDA-Public Use
  Company Number: None

PATIENT
  Age: 75 Year
  Sex: Female
  Weight: 58.05 kg

DRUGS (18)
  1. SCOPOLAMINE [Suspect]
     Active Substance: SCOPOLAMINE
     Indication: Motion sickness
     Dosage: OTHER QUANTITY : 3 PATCH(ES);?OTHER FREQUENCY : EVERY 3 DAYS;?
     Route: 062
  2. AMLODIPINE [Concomitant]
     Active Substance: AMLODIPINE BESYLATE
  3. SYNTHROID [Concomitant]
     Active Substance: LEVOTHYROXINE SODIUM
  4. CHLORTHALIDONE [Concomitant]
     Active Substance: CHLORTHALIDONE
  5. ATORVASTATIN [Concomitant]
     Active Substance: ATORVASTATIN
  6. BUDESONIDE [Concomitant]
     Active Substance: BUDESONIDE
  7. YUVAFEM [Concomitant]
     Active Substance: ESTRADIOL HEMIHYDRATE
  8. ESOMEPRAZOLE [Concomitant]
     Active Substance: ESOMEPRAZOLE
  9. RECLAST [Concomitant]
     Active Substance: ZOLEDRONIC ACID
  10. C [Concomitant]
  11. Ortho molecular Dhea [Concomitant]
  12. Curamed (Curcumin with Turmerones [Concomitant]
  13. COENZYME Q10 [Concomitant]
     Active Substance: DIETARY SUPPLEMENT\UBIDECARENONE
  14. VITAMIN D [Concomitant]
     Active Substance: VITAMIN D NOS
  15. CALCIUM [Concomitant]
     Active Substance: CALCIUM
  16. VITAMIN D [Concomitant]
     Active Substance: VITAMIN D NOS
  17. VITAMIN K [Concomitant]
     Active Substance: PHYTONADIONE
  18. VITAMIN B12 [Concomitant]
     Active Substance: CYANOCOBALAMIN

REACTIONS (7)
  - Confusional state [None]
  - Gait disturbance [None]
  - Agitation [None]
  - Hunger [None]
  - Fall [None]
  - Head injury [None]
  - Disorientation [None]

NARRATIVE: CASE EVENT DATE: 20230507
